FAERS Safety Report 7087778-6 (Version None)
Quarter: 2010Q4

REPORT INFORMATION
  Report Type: 
  Country: None (occurrence: None)
  Receive Date: 20101108
  Receipt Date: 20101025
  Transmission Date: 20110411
  Serious: Yes (Other)
  Sender: FDA-Public Use
  Company Number: GB-RANBAXY-2010R1-39149

PATIENT

DRUGS (2)
  1. PRAVASTATIN [Suspect]
     Indication: HYPERLIPIDAEMIA
     Dosage: 10 MG, QD
     Route: 048
     Dates: start: 20100906
  2. DICLOFENAC SODIUM [Concomitant]
     Indication: ARTHRALGIA
     Dosage: 50 MG, BID
     Route: 048
     Dates: start: 20070418

REACTIONS (2)
  - FOREIGN BODY SENSATION IN EYES [None]
  - RESTLESS LEGS SYNDROME [None]
